FAERS Safety Report 6309980-0 (Version None)
Quarter: 2009Q3

REPORT INFORMATION
  Report Type: 
  Country: None (occurrence: None)
  Receive Date: 20090811
  Receipt Date: 20090728
  Transmission Date: 20100115
  Serious: Yes (Hospitalization)
  Sender: FDA-Public Use
  Company Number: 233903K09USA

PATIENT
  Age: 62 Year
  Sex: Female
  Weight: 84 kg

DRUGS (14)
  1. REBIF [Suspect]
     Indication: MULTIPLE SCLEROSIS
     Dosage: 44 MCG, 3 IN 1 WEEKS, SUBCUTANEOUS
     Route: 058
     Dates: start: 20030529, end: 20040101
  2. REBIF [Suspect]
     Indication: MULTIPLE SCLEROSIS
     Dosage: 44 MCG, 3 IN 1 WEEKS, SUBCUTANEOUS
     Route: 058
     Dates: start: 20040901, end: 20060301
  3. REBIF [Suspect]
     Indication: MULTIPLE SCLEROSIS
     Dosage: 44 MCG, 3 IN 1 WEEKS, SUBCUTANEOUS
     Route: 058
     Dates: start: 20061208
  4. GLIPIZIDE [Concomitant]
  5. GLUCOPHAGE [Concomitant]
  6. ACTOS [Concomitant]
  7. LOTREL [Concomitant]
  8. ZOCOR [Concomitant]
  9. TRICOR [Concomitant]
  10. METAMUCIL (PLANTAGO OVATA) [Concomitant]
  11. NORVASC [Concomitant]
  12. LISINOPRIL (LISINOPRIL DIHYDRATE) [Concomitant]
  13. TRILIPIX (FENOFIBRATE) [Concomitant]
  14. PRILOSEC [Concomitant]

REACTIONS (2)
  - ARTHRITIS [None]
  - THROMBOSIS [None]
